FAERS Safety Report 13662060 (Version 9)
Quarter: 2018Q1

REPORT INFORMATION
  Report Type: Report from Study
  Country: ZA (occurrence: ZA)
  Receive Date: 20170616
  Receipt Date: 20180116
  Transmission Date: 20180508
  Serious: Yes (Hospitalization, Other)
  Sender: FDA-Public Use
  Company Number: ZA-BRISTOL-MYERS SQUIBB COMPANY-BMS-2017-051801

PATIENT
  Sex: Female

DRUGS (1)
  1. ABATACEPT [Suspect]
     Active Substance: ABATACEPT
     Indication: RHEUMATOID ARTHRITIS
     Dosage: 125 MG, QWK
     Route: 058
     Dates: start: 20170601

REACTIONS (7)
  - Pharyngitis [Unknown]
  - Pain [Unknown]
  - Arterial occlusive disease [Unknown]
  - Herpes ophthalmic [Not Recovered/Not Resolved]
  - Cardiac disorder [Unknown]
  - Dyspnoea [Unknown]
  - Nasopharyngitis [Unknown]
